FAERS Safety Report 8800065 (Version 2)
Quarter: 2015Q1

REPORT INFORMATION
  Report Type: Report from Study
  Country: US (occurrence: US)
  Receive Date: 20120921
  Receipt Date: 20150319
  Transmission Date: 20150721
  Serious: Yes (Death)
  Sender: FDA-Public Use
  Company Number: US-ROCHE-1124542

PATIENT
  Sex: Female

DRUGS (5)
  1. XELODA [Suspect]
     Active Substance: CAPECITABINE
     Indication: BONE CANCER
  2. AVASTIN [Suspect]
     Active Substance: BEVACIZUMAB
     Indication: BONE CANCER
  3. XELODA [Suspect]
     Active Substance: CAPECITABINE
     Indication: BREAST CANCER FEMALE
     Route: 065
  4. AVASTIN [Suspect]
     Active Substance: BEVACIZUMAB
     Indication: BREAST CANCER FEMALE
     Route: 042
     Dates: start: 20061024
  5. FASLODEX [Concomitant]
     Active Substance: FULVESTRANT

REACTIONS (2)
  - Death [Fatal]
  - Off label use [Unknown]
